FAERS Safety Report 7759865-8 (Version None)
Quarter: 2011Q3

REPORT INFORMATION
  Report Type: 
  Country: None (occurrence: None)
  Receive Date: 20110919
  Receipt Date: 20110908
  Transmission Date: 20111222
  Serious: Yes (Other)
  Sender: FDA-Public Use
  Company Number: US-JNJFOC-20101108783

PATIENT
  Sex: Male
  Weight: 12.7 kg

DRUGS (11)
  1. INFLIXIMAB, RECOMBINANT [Suspect]
     Indication: CROHN'S DISEASE
     Route: 042
     Dates: start: 20091111
  2. PROBIOTICS [Concomitant]
  3. MULTI-VITAMINS [Concomitant]
  4. ANTIBIOTICS [Concomitant]
  5. MESALAMINE [Concomitant]
  6. INFLIXIMAB, RECOMBINANT [Suspect]
     Route: 042
     Dates: start: 20101122
  7. DEXTRAN INJ [Concomitant]
  8. ENTERAL NUTRITION [Concomitant]
  9. INFLIXIMAB, RECOMBINANT [Suspect]
     Route: 042
     Dates: start: 20101014
  10. PREDNISONE [Concomitant]
  11. FERROUS SULFATE TAB [Concomitant]

REACTIONS (4)
  - INFLAMMATORY BOWEL DISEASE [None]
  - TOXICITY TO VARIOUS AGENTS [None]
  - HAEMORRHAGIC ANAEMIA [None]
  - DISEASE PROGRESSION [None]
